FAERS Safety Report 4982155-3 (Version None)
Quarter: 2006Q2

REPORT INFORMATION
  Report Type: 
  Country: None (occurrence: None)
  Receive Date: 20060421
  Receipt Date: 20060411
  Transmission Date: 20061013
  Serious: Yes (Hospitalization)
  Sender: FDA-Public Use
  Company Number: 223999

PATIENT
  Age: 51 Year
  Sex: Female

DRUGS (3)
  1. AVASTIN [Suspect]
     Indication: BREAST CANCER
     Dosage: 653 MG, SINGLE, INTRAVENOUS
     Route: 042
     Dates: start: 20051003, end: 20051223
  2. GEMCITABINE [Suspect]
     Indication: BREAST CANCER
     Dosage: 1700 MG, 1/WEEK, INTRAVENOUS
     Route: 042
     Dates: start: 20051003, end: 20051020
  3. LAPATINIB (LAPATINIB DITOSYLATE) [Concomitant]
     Indication: BREAST CANCER
     Dosage: 1500 MG, QD, ORAL
     Route: 048
     Dates: end: 20050901

REACTIONS (2)
  - DISEASE PROGRESSION [None]
  - PNEUMONIA [None]
